FAERS Safety Report 8862854 (Version 2)
Quarter: 2012Q4

REPORT INFORMATION
  Report Type: 
  Country: FR (occurrence: FR)
  Receive Date: 20121026
  Receipt Date: 20121107
  Transmission Date: 20130627
  Serious: Yes (Death, Life-Threatening, Hospitalization)
  Sender: FDA-Public Use
  Company Number: FR-GLAXOSMITHKLINE-B0838706A

PATIENT
  Age: 78 Year
  Sex: Female
  Weight: 70 kg

DRUGS (4)
  1. ARIXTRA [Suspect]
     Indication: THROMBOPHLEBITIS
     Dosage: 7.5MG Per day
     Route: 058
     Dates: start: 20120602, end: 20120604
  2. NOOTROPYL [Concomitant]
     Indication: MEMORY IMPAIRMENT
  3. DEROXAT [Concomitant]
     Indication: DEPRESSION
     Dosage: 20MG Per day
     Route: 048
     Dates: start: 2009
  4. APROVEL [Concomitant]
     Indication: HYPERTENSION
     Dosage: 150MG Per day
     Route: 048
     Dates: start: 2000

REACTIONS (3)
  - Cerebral haemorrhage [Fatal]
  - Haemorrhagic stroke [Fatal]
  - Coma [Fatal]
